FAERS Safety Report 13670226 (Version 2)
Quarter: 2017Q2

REPORT INFORMATION
  Report Type: Spontaneous
  Country: IT (occurrence: IT)
  Receive Date: 20170620
  Receipt Date: 20170627
  Transmission Date: 20170830
  Serious: Yes (Hospitalization)
  Sender: FDA-Public Use
  Company Number: IT-SA-2017SA104104

PATIENT
  Age: 79 Year
  Sex: Male

DRUGS (8)
  1. CLOPIDOGREL BISULFATE. [Suspect]
     Active Substance: CLOPIDOGREL BISULFATE
     Indication: MYOCARDIAL INFARCTION
     Route: 048
  2. ATORVASTATIN [Interacting]
     Active Substance: ATORVASTATIN
     Indication: MYOCARDIAL INFARCTION
     Route: 048
  3. COUMADIN [Interacting]
     Active Substance: WARFARIN SODIUM
     Indication: ATRIAL FIBRILLATION
     Route: 048
  4. CARDIOASPIRIN [Interacting]
     Active Substance: ASPIRIN
     Indication: INFARCTION
     Route: 048
  5. BISOPROLOL FUMARATE. [Concomitant]
     Active Substance: BISOPROLOL FUMARATE
  6. ALLOPURINOL. [Concomitant]
     Active Substance: ALLOPURINOL
  7. ENALAPRIL [Concomitant]
     Active Substance: ENALAPRIL
  8. OMEPRAZOLE. [Concomitant]
     Active Substance: OMEPRAZOLE

REACTIONS (3)
  - International normalised ratio increased [Recovering/Resolving]
  - Drug interaction [Unknown]
  - Haematoma [Recovering/Resolving]

NARRATIVE: CASE EVENT DATE: 20170529
